FAERS Safety Report 4323072-1 (Version None)
Quarter: 2004Q1

REPORT INFORMATION
  Report Type: 
  Country: None (occurrence: None)
  Receive Date: 20040322
  Receipt Date: 20040318
  Transmission Date: 20041129
  Serious: Yes (Disabling)
  Sender: FDA-Public Use
  Company Number: 002#4#2002-00278 (0)

PATIENT
  Sex: Male

DRUGS (3)
  1. CHLORPHENIRAMINE MALEATE AND PHENYLPROPANOLAMINE HCL [Suspect]
     Dosage: ORAL
     Route: 048
  2. ALKA-SELTZER-PLUS [Suspect]
     Dosage: ORAL
     Route: 048
  3. DIMETAPP [Suspect]
     Dosage: ORAL
     Route: 048

REACTIONS (1)
  - CEREBROVASCULAR ACCIDENT [None]
